FAERS Safety Report 10912138 (Version 1)
Quarter: 2015Q1

REPORT INFORMATION
  Report Type: Spontaneous
  Country: GB (occurrence: None)
  Receive Date: 20150309
  Receipt Date: 20150309
  Transmission Date: 20150721
  Serious: Yes (Hospitalization)
  Sender: FDA-Public Use
  Company Number: GB-H14001-15-00303

PATIENT
  Age: 83 Year
  Sex: Female

DRUGS (19)
  1. CARBOCISTEINE [Concomitant]
     Active Substance: CARBOCYSTEINE
  2. CIPROFLOXACIN. [Concomitant]
     Active Substance: CIPROFLOXACIN
  3. FUROSEMIDE. [Concomitant]
     Active Substance: FUROSEMIDE
  4. BISOPROLOL [Concomitant]
     Active Substance: BISOPROLOL
  5. METOCLOPRAMIDE. [Concomitant]
     Active Substance: METOCLOPRAMIDE
  6. CODEINE [Concomitant]
     Active Substance: CODEINE
  7. LACTULOSE. [Concomitant]
     Active Substance: LACTULOSE
  8. HYDROXOCOBALAMIN [Concomitant]
     Active Substance: HYDROXOCOBALAMIN
  9. ALENDRONIC ACID [Concomitant]
     Active Substance: ALENDRONIC ACID
  10. CALCICHEW D3 (LEKOVIT CA) (COLECALCIFEROL, CALCIUM CARBONATE) [Concomitant]
  11. PARACETAMOL [Concomitant]
     Active Substance: ACETAMINOPHEN
  12. CO-AMOXICLAV (AUGMENTIN/00756801) [Suspect]
     Active Substance: AMOXICILLIN\CLAVULANATE POTASSIUM
     Indication: PNEUMONIA
     Dosage: (625 MG, 3 IN 1 D)
     Route: 048
     Dates: start: 20141226, end: 20150105
  13. CO-AMOXICLAV (AUGMENTIN/00756801) [Suspect]
     Active Substance: AMOXICILLIN\CLAVULANATE POTASSIUM
     Indication: PNEUMONIA
     Dosage: (1.2 GM, 3 IN 1 D)
     Dates: start: 20141216, end: 20141226
  14. ORAMORPH (MORPPHINE SULFATE PENTAHYDRATE) [Concomitant]
  15. RAMIPRIL. [Concomitant]
     Active Substance: RAMIPRIL
  16. SANDO-K (POTASSIUM CHLORIDE) [Concomitant]
  17. CLARITHROMYCIN (CLARITHROMYCIN) (CLARITHROMYCIN) [Suspect]
     Active Substance: CLARITHROMYCIN
     Indication: PNEUMONIA
     Dosage: (500 MG, 2 IN 1 D)
     Dates: start: 20141216, end: 20141226
  18. TAMIFLU [Concomitant]
     Active Substance: OSELTAMIVIR PHOSPHATE
  19. TINZAPARIN [Concomitant]
     Active Substance: TINZAPARIN

REACTIONS (1)
  - Drug-induced liver injury [None]

NARRATIVE: CASE EVENT DATE: 20150202
